FAERS Safety Report 6885936-4 (Version None)
Quarter: 2010Q3

REPORT INFORMATION
  Report Type: 
  Country: None (occurrence: None)
  Receive Date: 20100729
  Receipt Date: 20090321
  Transmission Date: 20110219
  Serious: No
  Sender: FDA-Public Use
  Company Number: US-PFIZER INC-2009167068

PATIENT
  Sex: Female
  Weight: 58.5 kg

DRUGS (1)
  1. QUINAPRIL HCL [Suspect]
     Dosage: 10 MG, 1X/DAY

REACTIONS (3)
  - ABDOMINAL PAIN UPPER [None]
  - BLOOD PRESSURE INADEQUATELY CONTROLLED [None]
  - HEADACHE [None]
